FAERS Safety Report 6615644-6 (Version None)
Quarter: 2010Q1

REPORT INFORMATION
  Report Type: 
  Country: None (occurrence: None)
  Receive Date: 20100305
  Receipt Date: 20100224
  Transmission Date: 20100710
  Serious: Yes (Other)
  Sender: FDA-Public Use
  Company Number: US-BAYER-201014959NA

PATIENT
  Age: 23 Year
  Sex: Female

DRUGS (1)
  1. YAZ [Suspect]
     Indication: ORAL CONTRACEPTION
     Route: 048
     Dates: start: 20100101, end: 20100219

REACTIONS (6)
  - ANGINA PECTORIS [None]
  - CHEST PAIN [None]
  - CHILLS [None]
  - HEADACHE [None]
  - HOT FLUSH [None]
  - VAGINAL HAEMORRHAGE [None]
